FAERS Safety Report 5968621-2 (Version None)
Quarter: 2008Q4

REPORT INFORMATION
  Report Type: 
  Country: None (occurrence: None)
  Receive Date: 20081126
  Receipt Date: 20081119
  Transmission Date: 20090506
  Serious: Yes (Death, Hospitalization, Disabling)
  Sender: FDA-Public Use
  Company Number: CG-MERCK-0811USA03640

PATIENT
  Age: 40 Year
  Sex: Male

DRUGS (1)
  1. STROMECTOL [Suspect]
     Indication: ONCHOCERCIASIS
     Route: 048
     Dates: start: 20081012, end: 20081012

REACTIONS (7)
  - ASTHENIA [None]
  - DECUBITUS ULCER [None]
  - HEADACHE [None]
  - JOINT STIFFNESS [None]
  - MENINGITIS [None]
  - NUCHAL RIGIDITY [None]
  - VERTIGO [None]
